FAERS Safety Report 21009307 (Version 1)
Quarter: 2022Q2

REPORT INFORMATION
  Report Type: Spontaneous
  Country: US (occurrence: US)
  Receive Date: 20220627
  Receipt Date: 20220627
  Transmission Date: 20220721
  Serious: Yes (Other)
  Sender: FDA-Public Use
  Company Number: US-Shilpa Medicare Limited-SML-US-2022-00688

PATIENT
  Age: 72 Year
  Sex: Female

DRUGS (12)
  1. DOCETAXEL [Suspect]
     Active Substance: DOCETAXEL
     Indication: Hormone receptor negative HER2 positive breast cancer
     Dosage: FIRST-LINE TREATMENT
  2. DOCETAXEL [Suspect]
     Active Substance: DOCETAXEL
     Indication: Metastases to lymph nodes
  3. CAPECITABINE [Suspect]
     Active Substance: CAPECITABINE
     Indication: Hormone receptor negative HER2 positive breast cancer
     Dosage: THIRD-LINE TREATMENT
  4. CAPECITABINE [Suspect]
     Active Substance: CAPECITABINE
     Indication: Metastases to lymph nodes
  5. TRASTUZUMAB [Suspect]
     Active Substance: TRASTUZUMAB
     Indication: Hormone receptor negative HER2 positive breast cancer
     Dosage: FIRST-LINE TREATMENT
  6. TRASTUZUMAB [Suspect]
     Active Substance: TRASTUZUMAB
     Indication: Metastases to lymph nodes
  7. PERTUZUMAB [Suspect]
     Active Substance: PERTUZUMAB
     Indication: Hormone receptor negative HER2 positive breast cancer
     Dosage: FIRST-LINE TREATMENT
  8. PERTUZUMAB [Suspect]
     Active Substance: PERTUZUMAB
     Indication: Metastases to lymph nodes
  9. ADO-TRASTUZUMAB EMTANSINE [Suspect]
     Active Substance: ADO-TRASTUZUMAB EMTANSINE
     Indication: Hormone receptor negative HER2 positive breast cancer
     Dosage: SECOND-LINE TREATMENT
  10. ADO-TRASTUZUMAB EMTANSINE [Suspect]
     Active Substance: ADO-TRASTUZUMAB EMTANSINE
     Indication: Metastases to lymph nodes
  11. LAPATINIB [Suspect]
     Active Substance: LAPATINIB
     Indication: Hormone receptor negative HER2 positive breast cancer
     Dosage: THIRD-LINE TREATMENT
  12. LAPATINIB [Suspect]
     Active Substance: LAPATINIB
     Indication: Metastases to lymph nodes

REACTIONS (3)
  - Disease progression [Unknown]
  - Therapy partial responder [Unknown]
  - Drug ineffective [Unknown]
